FAERS Safety Report 6131247-4 (Version None)
Quarter: 2009Q1

REPORT INFORMATION
  Report Type: 
  Country: None (occurrence: None)
  Receive Date: 20090325
  Receipt Date: 20080205
  Transmission Date: 20090719
  Serious: No
  Sender: FDA-Public Use
  Company Number: US-BRISTOL-MYERS SQUIBB COMPANY-14064612

PATIENT
  Age: 54 Year
  Sex: Male

DRUGS (4)
  1. ERBITUX [Suspect]
     Indication: HEAD AND NECK CANCER
     Dosage: INFUSION STOPPED AFTER 1 HOUR
     Route: 042
     Dates: start: 20080204
  2. DECADRON [Concomitant]
     Indication: PREMEDICATION
     Dosage: ON 05-FEB-2008-20MG.
     Dates: start: 20080204
  3. BENADRYL [Concomitant]
     Indication: PREMEDICATION
     Dosage: ON05-FEB-2008    -50MG
     Dates: start: 20080204
  4. ZANTAC [Concomitant]
     Indication: PREMEDICATION
     Dates: start: 20080204

REACTIONS (2)
  - CHILLS [None]
  - PYREXIA [None]
